FAERS Safety Report 19583061 (Version 1)
Quarter: 2021Q3

REPORT INFORMATION
  Report Type: Spontaneous
  Country: GR (occurrence: GR)
  Receive Date: 20210720
  Receipt Date: 20210720
  Transmission Date: 20211014
  Serious: Yes (Life-Threatening, Other)
  Sender: FDA-Public Use
  Company Number: GR-B.I. PHARMACEUTICALS,INC./RIDGEFIELD-2021-BI-116281

PATIENT
  Age: 62 Year
  Sex: Male
  Weight: 85 kg

DRUGS (7)
  1. GLUCOPHAGE [Concomitant]
     Active Substance: METFORMIN HYDROCHLORIDE
     Indication: DIABETES MELLITUS
     Dosage: 1X2
     Route: 048
     Dates: start: 20030101
  2. COVERSYL [PERINDOPRIL ERBUMINE] [Concomitant]
     Active Substance: PERINDOPRIL ERBUMINE
     Indication: BLOOD PRESSURE MEASUREMENT
     Dosage: 1X1
     Route: 048
     Dates: start: 20030101
  3. ATROST [Concomitant]
     Active Substance: ATORVASTATIN CALCIUM
     Indication: HYPERLIPIDAEMIA
     Dates: start: 20030101
  4. JARDIANCE [Suspect]
     Active Substance: EMPAGLIFLOZIN
     Indication: DIABETES MELLITUS
     Dosage: 1X1
     Route: 048
     Dates: start: 20191219, end: 20210422
  5. DILATREND [Concomitant]
     Active Substance: CARVEDILOL
     Indication: HYPERTENSION
     Dosage: 1X2
     Dates: start: 20030101
  6. SALOSPIR [Concomitant]
     Active Substance: ASPIRIN
     Indication: BLOOD PRESSURE MEASUREMENT
     Route: 048
     Dates: start: 20030101
  7. XATRAL [Concomitant]
     Active Substance: ALFUZOSIN
     Indication: BENIGN PROSTATIC HYPERPLASIA
     Dosage: 1X1
     Route: 048

REACTIONS (2)
  - Hypernatraemia [Recovered/Resolved]
  - Polycythaemia [Recovered/Resolved]

NARRATIVE: CASE EVENT DATE: 20210323
